FAERS Safety Report 14608896 (Version 1)
Quarter: 2018Q1

REPORT INFORMATION
  Report Type: Spontaneous
  Country: US (occurrence: US)
  Receive Date: 20180307
  Receipt Date: 20180307
  Transmission Date: 20180509
  Serious: No
  Sender: FDA-Public Use
  Company Number: US-ELI_LILLY_AND_COMPANY-US201803001722

PATIENT
  Sex: Male

DRUGS (2)
  1. STATIN                             /00036501/ [Concomitant]
     Active Substance: NYSTATIN
     Dosage: 10 MG, UNK
  2. CIALIS [Suspect]
     Active Substance: TADALAFIL
     Indication: BENIGN PROSTATIC HYPERPLASIA
     Dosage: 5 MG, DAILY
     Route: 065
     Dates: start: 20180209

REACTIONS (4)
  - Sleep disorder due to a general medical condition [Unknown]
  - Pollakiuria [Unknown]
  - Headache [Unknown]
  - Drug ineffective [Unknown]
